FAERS Safety Report 13782065 (Version 1)
Quarter: 2017Q3

REPORT INFORMATION
  Report Type: Spontaneous
  Country: US (occurrence: US)
  Receive Date: 20170724
  Receipt Date: 20170724
  Transmission Date: 20171127
  Serious: Yes (Life-Threatening, Congenital Anomaly, Other)
  Sender: FDA-Public Use
  Company Number: None

PATIENT
  Age: 46 Year
  Sex: Female

DRUGS (12)
  1. LURASIDONE [Concomitant]
     Active Substance: LURASIDONE
  2. NICOTINE TRANSDERMAL SYSTEM [Concomitant]
     Active Substance: NICOTINE
  3. LORAZEPAM. [Concomitant]
     Active Substance: LORAZEPAM
  4. METFORMIN [Concomitant]
     Active Substance: METFORMIN HYDROCHLORIDE
  5. CLOZAPINE. [Concomitant]
     Active Substance: CLOZAPINE
  6. ZOLPIDEM [Concomitant]
     Active Substance: ZOLPIDEM\ZOLPIDEM TARTRATE
  7. IPRATROPIUM [Concomitant]
     Active Substance: IPRATROPIUM
  8. RISPERIDONE. [Suspect]
     Active Substance: RISPERIDONE
     Indication: PSYCHOTIC DISORDER
     Dosage: ?          OTHER DOSE:MG;?
     Route: 048
     Dates: start: 20161103, end: 20170330
  9. WARFARIN [Concomitant]
     Active Substance: WARFARIN
  10. DIVALPROEX [Concomitant]
     Active Substance: DIVALPROEX SODIUM
  11. AMANTADINE. [Suspect]
     Active Substance: AMANTADINE HYDROCHLORIDE
     Indication: PARKINSONISM
     Dosage: ?          OTHER DOSE:MG;?
     Route: 048
     Dates: start: 20161223, end: 20170330
  12. LISINOPRIL. [Concomitant]
     Active Substance: LISINOPRIL

REACTIONS (1)
  - Electrocardiogram QT prolonged [None]

NARRATIVE: CASE EVENT DATE: 20170328
